FAERS Safety Report 4751372-X (Version None)
Quarter: 2005Q3

REPORT INFORMATION
  Report Type: 
  Country: None (occurrence: None)
  Receive Date: 20050823
  Receipt Date: 20050823
  Transmission Date: 20060218
  Serious: Yes (Death)
  Sender: FDA-Public Use
  Company Number: None

PATIENT
  Age: 72 Year
  Sex: Male
  Weight: 98.1 kg

DRUGS (8)
  1. ENALAPRIL [Suspect]
     Indication: HYPERTENSION
     Dosage: 10 MG   BID   BUCCAL
     Route: 002
  2. LASIX [Concomitant]
  3. GLYBURIDE [Concomitant]
  4. AMBIEN [Concomitant]
  5. K-DUR 10 [Concomitant]
  6. ZOCOR [Concomitant]
  7. NITROGLYCERIN [Concomitant]
  8. ECOTRIN [Concomitant]

REACTIONS (1)
  - SWOLLEN TONGUE [None]
